FAERS Safety Report 8478001-6 (Version None)
Quarter: 2012Q2

REPORT INFORMATION
  Report Type: 
  Country: None (occurrence: None)
  Receive Date: 20120629
  Receipt Date: 20120625
  Transmission Date: 20120825
  Serious: No
  Sender: FDA-Public Use
  Company Number: US-B.I. PHARMACEUTICALS,INC./RIDGEFIELD-2012-BP-14449BP

PATIENT
  Sex: Female

DRUGS (6)
  1. SPIRIVA [Suspect]
     Route: 048
     Dates: start: 20120625, end: 20120625
  2. METHOTREXATE [Concomitant]
     Indication: ARTHRITIS
  3. VITAMIN TAB [Concomitant]
     Indication: SUPPLEMENTATION THERAPY
  4. SPIRIVA [Suspect]
     Indication: PLEURAL EFFUSION
     Dosage: 18 MCG
     Route: 055
  5. CELEBREX [Concomitant]
     Indication: ARTHRITIS
  6. ENBREL [Concomitant]
     Indication: ARTHRITIS

REACTIONS (6)
  - INCORRECT ROUTE OF DRUG ADMINISTRATION [None]
  - HEADACHE [None]
  - AMNESIA [None]
  - CHEST PAIN [None]
  - INCREASED UPPER AIRWAY SECRETION [None]
  - COUGH [None]
